FAERS Safety Report 9698429 (Version 1)
Quarter: 2013Q4

REPORT INFORMATION
  Report Type: Spontaneous
  Country: US (occurrence: US)
  Receive Date: 20131120
  Receipt Date: 20131120
  Transmission Date: 20140711
  Serious: Yes (Other)
  Sender: FDA-Public Use
  Company Number: US-TEVA-445254USA

PATIENT
  Age: 26 Year
  Sex: Female
  Weight: 57.2 kg

DRUGS (3)
  1. PARAGARD 380A [Suspect]
     Indication: CONTRACEPTION
     Route: 015
     Dates: start: 20131030, end: 20131113
  2. IRON [Concomitant]
     Indication: BREAST FEEDING
  3. MULTIVITAMIN [Concomitant]
     Indication: BREAST FEEDING

REACTIONS (2)
  - Uterine perforation [Recovered/Resolved]
  - Exposure during breast feeding [Unknown]
